FAERS Safety Report 21271497 (Version 1)
Quarter: 2022Q3

REPORT INFORMATION
  Report Type: Report from Study
  Country: US (occurrence: US)
  Receive Date: 20220830
  Receipt Date: 20220830
  Transmission Date: 20221026
  Serious: Yes (Other)
  Sender: FDA-Public Use
  Company Number: US-MYLANLABS-2022M1089598

PATIENT
  Age: 66 Year
  Sex: Male

DRUGS (9)
  1. DOXORUBICIN [Suspect]
     Active Substance: DOXORUBICIN
     Indication: High-grade B-cell lymphoma
     Dosage: UNK UNK, CYCLE (ADMINISTERED UNDER THE R-CHOP CHEMOTHERAPY REGIMEN)
     Route: 065
  2. PREDNISONE [Suspect]
     Active Substance: PREDNISONE
     Indication: High-grade B-cell lymphoma
     Dosage: UNK, CYCLE (ADMINISTERED UNDER THE R-CHOP CHEMOTHERAPY REGIMEN)
     Route: 065
  3. DEXAMETHASONE [Suspect]
     Active Substance: DEXAMETHASONE
     Indication: High-grade B-cell lymphoma
     Dosage: UNK, CYCLE (ADMINISTERED AS A PART OF THE R-DHAP/R-DHAOX CHEMOTHERAPY REGIMEN)
     Route: 065
  4. CYTARABINE [Suspect]
     Active Substance: CYTARABINE
     Indication: High-grade B-cell lymphoma
     Dosage: UNK, CYCLE (HIGH-DOSE (ADMINISTERED AS A PART OF THE R-DHAP/R-DHAOX CHEMOTHERAPY REGIMEN)
     Route: 065
  5. CISPLATIN [Suspect]
     Active Substance: CISPLATIN
     Indication: High-grade B-cell lymphoma
     Dosage: UNK, CYCLE (ADMINISTERED AS A PART OF THE R-DHAP CHEMOTHERAPY REGIMEN)
     Route: 065
  6. OXALIPLATIN [Suspect]
     Active Substance: OXALIPLATIN
     Indication: High-grade B-cell lymphoma
     Dosage: UNK, CYCLE (ADMINISTERED AS A PART OF THE R-DHAOX CHEMOTHERAPY REGIMEN)
     Route: 065
  7. RITUXIMAB [Suspect]
     Active Substance: RITUXIMAB
     Indication: High-grade B-cell lymphoma
     Dosage: UNK UNK, CYCLE (ADMINISTERED UNDER THE R-CHOP CHEMOTHERAPY REGIMEN AND AS A PART OF THE R-DHAP/R-DHA
     Route: 065
  8. CYCLOPHOSPHAMIDE [Suspect]
     Active Substance: CYCLOPHOSPHAMIDE
     Indication: High-grade B-cell lymphoma
     Dosage: UNK UNK, CYCLE (ADMINISTERED UNDER THE R-CHOP CHEMOTHERAPY REGIMEN)
     Route: 065
  9. ONCOVIN [Suspect]
     Active Substance: VINCRISTINE SULFATE
     Indication: High-grade B-cell lymphoma
     Dosage: UNK UNK, CYCLE (ADMINISTERED UNDER THE R-CHOP CHEMOTHERAPY REGIMEN)
     Route: 065

REACTIONS (2)
  - Drug ineffective [Unknown]
  - Disease progression [Unknown]
